FAERS Safety Report 8073200-X (Version None)
Quarter: 2012Q1

REPORT INFORMATION
  Report Type: 
  Country: None (occurrence: None)
  Receive Date: 20120126
  Receipt Date: 20120116
  Transmission Date: 20120608
  Serious: Yes (Death)
  Sender: FDA-Public Use
  Company Number: US-ELI_LILLY_AND_COMPANY-US201004005804

PATIENT
  Sex: Female

DRUGS (8)
  1. FORTEO [Suspect]
     Dosage: 20 UG, QD
  2. FORTEO [Suspect]
     Dosage: 20 UG, QD
     Dates: start: 20100301
  3. CELEXA [Concomitant]
  4. OXYCONTIN [Concomitant]
  5. DIPHENOXYLATE HCL + ATROPINE SULFATE [Concomitant]
  6. ANTIBIOTICS [Concomitant]
  7. ONDANSETRON HCL [Concomitant]
  8. TRAMADOL HCL [Concomitant]

REACTIONS (2)
  - CALCINOSIS [None]
  - DEATH [None]
